FAERS Safety Report 10242133 (Version 1)
Quarter: 2014Q2

REPORT INFORMATION
  Report Type: Spontaneous
  Country: GB (occurrence: None)
  Receive Date: 20140613
  Receipt Date: 20140613
  Transmission Date: 20141212
  Serious: Yes (Other)
  Sender: FDA-Public Use
  Company Number: GB-H14001-14-00003

PATIENT
  Sex: Female

DRUGS (1)
  1. CIPROFLOXACIN (CIPROFLOXACIN) (CIPROFLOXACIN) [Suspect]
     Indication: URINARY TRACT INFECTION
     Dosage: UNKNOWN, UNKNOWN

REACTIONS (2)
  - Cystitis [None]
  - Pain [None]
